FAERS Safety Report 7689058-4 (Version None)
Quarter: 2011Q3

REPORT INFORMATION
  Report Type: 
  Country: None (occurrence: None)
  Receive Date: 20110817
  Receipt Date: 20110808
  Transmission Date: 20111222
  Serious: Yes (Death)
  Sender: FDA-Public Use
  Company Number: JP-BRISTOL-MYERS SQUIBB COMPANY-15974280

PATIENT

DRUGS (3)
  1. CISPLATIN [Suspect]
     Indication: CERVIX CARCINOMA
  2. BLEOMYCIN SULFATE [Suspect]
     Indication: CERVIX CARCINOMA
  3. MITOMYCIN [Suspect]
     Indication: CERVIX CARCINOMA

REACTIONS (1)
  - PULMONARY VENO-OCCLUSIVE DISEASE [None]
